FAERS Safety Report 9467027 (Version 5)
Quarter: 2014Q1

REPORT INFORMATION
  Report Type: Spontaneous
  Country: US (occurrence: US)
  Receive Date: 20130820
  Receipt Date: 20140221
  Transmission Date: 20141002
  Serious: Yes (Hospitalization)
  Sender: FDA-Public Use
  Company Number: US-GLAXOSMITHKLINE-A1038123A

PATIENT
  Age: 64 Year
  Sex: Male

DRUGS (4)
  1. VENTOLIN [Suspect]
     Indication: RESPIRATORY DISORDER
     Route: 065
     Dates: start: 20111221
  2. LOVAZA [Suspect]
     Indication: CARDIOVASCULAR DISORDER
     Dosage: 1G UNKNOWN
     Route: 065
     Dates: start: 20111221
  3. BLOOD PRESSURE MEDICATION [Concomitant]
  4. FISH OIL [Concomitant]

REACTIONS (4)
  - Arrhythmia [Unknown]
  - Inhalation therapy [Unknown]
  - Coronary artery occlusion [Unknown]
  - Fluid intake restriction [Unknown]
